FAERS Safety Report 18328358 (Version 9)
Quarter: 2021Q2

REPORT INFORMATION
  Report Type: Spontaneous
  Country: US (occurrence: US)
  Receive Date: 20200930
  Receipt Date: 20210531
  Transmission Date: 20210717
  Serious: Yes (Hospitalization, Other)
  Sender: FDA-Public Use
  Company Number: US-GLAXOSMITHKLINE-US2020AMR193538

PATIENT
  Age: 63 Year
  Sex: Female

DRUGS (9)
  1. ZEJULA [Suspect]
     Active Substance: NIRAPARIB
     Dosage: 100 MG, QD
     Route: 048
  2. COVID?19 VACCINE NOS. [Suspect]
     Active Substance: COVID-19 VACCINE NOS
     Indication: COVID-19 PROPHYLAXIS
     Dosage: UNK ( 1ST DOSE)
  3. ZEJULA [Suspect]
     Active Substance: NIRAPARIB
     Indication: OVARIAN CANCER
     Dosage: 300 MG, QD
     Route: 048
     Dates: start: 20200919
  4. ZEJULA [Suspect]
     Active Substance: NIRAPARIB
     Dosage: 200 MG, QD
  5. COVID?19 VACCINE NOS. [Suspect]
     Active Substance: COVID-19 VACCINE NOS
     Dosage: UNK ( 2ND DOSE)
  6. ZEJULA [Suspect]
     Active Substance: NIRAPARIB
     Dosage: 200 MG, QD
     Route: 048
  7. ZEJULA [Suspect]
     Active Substance: NIRAPARIB
     Dosage: 200 MG, QD
     Route: 048
  8. ZEJULA [Suspect]
     Active Substance: NIRAPARIB
     Dosage: 200 MG, QD
     Route: 048
  9. ZEJULA [Suspect]
     Active Substance: NIRAPARIB
     Dosage: 200 MG, QD
     Route: 048

REACTIONS (23)
  - Urinary tract infection [Unknown]
  - Stomatitis [Recovering/Resolving]
  - Condition aggravated [Recovering/Resolving]
  - Blood calcium decreased [Not Recovered/Not Resolved]
  - Vomiting [Unknown]
  - Blood glucose decreased [Unknown]
  - Diarrhoea [Unknown]
  - Facial nerve disorder [Unknown]
  - Back pain [Unknown]
  - Nausea [Recovering/Resolving]
  - Decreased appetite [Not Recovered/Not Resolved]
  - Weight decreased [Unknown]
  - Hypoaesthesia [Unknown]
  - Abdominal discomfort [Not Recovered/Not Resolved]
  - Rhinorrhoea [Unknown]
  - Platelet count decreased [Not Recovered/Not Resolved]
  - Bruxism [Unknown]
  - Intervertebral disc degeneration [Unknown]
  - Pain in extremity [Unknown]
  - Blood pressure abnormal [Unknown]
  - Sepsis [Unknown]
  - Nerve compression [Unknown]
  - Fatigue [Unknown]

NARRATIVE: CASE EVENT DATE: 202101
